FAERS Safety Report 5862875-9 (Version None)
Quarter: 2008Q3

REPORT INFORMATION
  Report Type: 
  Country: None (occurrence: None)
  Receive Date: 20080828
  Receipt Date: 20080822
  Transmission Date: 20090109
  Serious: Yes (Hospitalization)
  Sender: FDA-Public Use
  Company Number: A0731240A

PATIENT
  Age: 78 Year
  Sex: Female
  Weight: 93.2 kg

DRUGS (8)
  1. AVANDIA [Suspect]
     Dosage: 2MG PER DAY
     Route: 048
     Dates: start: 20040101, end: 20070207
  2. GLUCOPHAGE [Concomitant]
     Dates: start: 19980101, end: 20080101
  3. RANITIDINE [Concomitant]
  4. DICLOFENAC [Concomitant]
  5. LORTAB [Concomitant]
  6. HYDROCODONE BITARTRATE [Concomitant]
  7. NEURONTIN [Concomitant]
  8. TEMAZEPAM [Concomitant]

REACTIONS (3)
  - INJURY [None]
  - MYOCARDIAL INFARCTION [None]
  - NEURALGIA [None]
